FAERS Safety Report 20513340 (Version 1)
Quarter: 2022Q1

REPORT INFORMATION
  Report Type: Spontaneous
  Country: US (occurrence: US)
  Receive Date: 20220224
  Receipt Date: 20220224
  Transmission Date: 20220423
  Serious: No
  Sender: FDA-Public Use
  Company Number: US-SLATE RUN PHARMACEUTICALS-22US000914

PATIENT

DRUGS (7)
  1. BIVALIRUDIN [Suspect]
     Active Substance: BIVALIRUDIN
     Indication: Thrombosis
     Dosage: 1 MILLIGRAM PER KILOGRAM PER HOUR, UNK
     Route: 042
  2. BIVALIRUDIN [Suspect]
     Active Substance: BIVALIRUDIN
     Dosage: 0.5 MILLIGRAM PER KILOGRAM PER HOUR, UNK
     Route: 042
  3. BIVALIRUDIN [Suspect]
     Active Substance: BIVALIRUDIN
     Dosage: 0.3 MILLIGRAM PER KILOGRAM, SINGLE
     Route: 042
  4. BIVALIRUDIN [Suspect]
     Active Substance: BIVALIRUDIN
     Dosage: 0.25 MILLIGRAM PER KILOGRAM PER HOUR, UNK
     Route: 042
  5. BIVALIRUDIN [Suspect]
     Active Substance: BIVALIRUDIN
     Dosage: 0.75 MILLIGRAM PER KILOGRAM, SINGLE
     Route: 042
  6. TIROFIBAN HYDROCHLORIDE [Concomitant]
     Active Substance: TIROFIBAN HYDROCHLORIDE
     Indication: Thrombosis
     Dosage: 0.075 MICROGRAM PER KILOGRAM PER MINUTE, UNK
     Route: 042
  7. TIROFIBAN HYDROCHLORIDE [Concomitant]
     Active Substance: TIROFIBAN HYDROCHLORIDE
     Dosage: 25 MICROGRAM PER KILOGRAM, SINGLE
     Route: 042

REACTIONS (3)
  - Drug resistance [Unknown]
  - Coagulation time shortened [Recovered/Resolved]
  - Off label use [Unknown]
